FAERS Safety Report 8905801 (Version 1)
Quarter: 2012Q4

REPORT INFORMATION
  Report Type: 
  Country: FR (occurrence: FR)
  Receive Date: 20121113
  Receipt Date: 20121113
  Transmission Date: 20130627
  Serious: Yes (Hospitalization)
  Sender: FDA-Public Use
  Company Number: FR-GLAXOSMITHKLINE-B0841964A

PATIENT
  Age: 84 Year
  Sex: Male

DRUGS (15)
  1. ARIXTRA [Suspect]
     Indication: PRODUCT USED FOR UNKNOWN INDICATION
     Dosage: 7.5MG Per day
     Route: 058
     Dates: start: 20120827, end: 20120925
  2. KARDEGIC [Suspect]
     Indication: PRODUCT USED FOR UNKNOWN INDICATION
     Dosage: 1UNIT Per day
     Route: 048
  3. DEROXAT [Concomitant]
     Dosage: 1TAB Per day
     Route: 048
  4. CALCIUM + VITAMIN D3 [Concomitant]
     Dosage: 2UNIT Per day
     Route: 048
  5. PREDNISONE [Concomitant]
     Route: 048
     Dates: start: 20120817
  6. SPECIAFOLDINE [Concomitant]
     Dosage: 1TAB Per day
     Route: 048
  7. XATRAL [Concomitant]
     Dosage: 1TAB Per day
     Route: 048
  8. PRAVASTATIN SODIUM [Concomitant]
     Dosage: 1UNIT Per day
     Route: 048
  9. EUPANTOL [Concomitant]
     Dosage: 1TAB Per day
     Route: 048
  10. EUPRESSYL [Concomitant]
     Dosage: 1CAP Per day
     Route: 048
  11. ESIDREX [Concomitant]
     Dosage: 1UNIT Per day
     Route: 048
  12. ENALAPRIL MALEATE [Concomitant]
     Dosage: 5MG Per day
     Route: 048
  13. AMLOR [Concomitant]
     Dosage: 1CAP Per day
     Route: 048
  14. LOVENOX [Concomitant]
     Dosage: .6ML per day
     Dates: start: 20120824, end: 20120827
  15. ANTIVITAMINS K [Concomitant]

REACTIONS (5)
  - Gastrointestinal haemorrhage [Recovering/Resolving]
  - Muscle haemorrhage [Recovering/Resolving]
  - Hypotension [Unknown]
  - Drug interaction [Unknown]
  - Intentional drug misuse [Unknown]
